FAERS Safety Report 25933098 (Version 1)
Quarter: 2025Q4

REPORT INFORMATION
  Report Type: Spontaneous
  Country: US (occurrence: US)
  Receive Date: 20251017
  Receipt Date: 20251017
  Transmission Date: 20260119
  Serious: Yes (Hospitalization, Other)
  Sender: PHARMOBEDIENT CONSULTING, LLC
  Company Number: US-Pharmobedient-000319

PATIENT
  Age: 44 Year
  Sex: Female

DRUGS (5)
  1. CISPLATIN [Suspect]
     Active Substance: CISPLATIN
     Indication: Extragonadal primary seminoma (pure)
  2. ETOPOSIDE [Suspect]
     Active Substance: ETOPOSIDE
     Indication: Extragonadal primary seminoma (pure)
  3. BLEOMYCIN [Suspect]
     Active Substance: BLEOMYCIN SULFATE
     Indication: Extragonadal primary seminoma (pure)
  4. FUROSEMIDE [Concomitant]
     Active Substance: FUROSEMIDE
     Indication: Hypervolaemia
  5. GRANIX [Concomitant]
     Active Substance: TBO-FILGRASTIM
     Indication: Product used for unknown indication

REACTIONS (4)
  - Immunosuppression [Unknown]
  - Myelosuppression [Unknown]
  - Pneumonia [Unknown]
  - Disease progression [Unknown]
